FAERS Safety Report 5734678-7 (Version None)
Quarter: 2008Q2

REPORT INFORMATION
  Report Type: 
  Country: None (occurrence: None)
  Receive Date: 20080512
  Receipt Date: 20080507
  Transmission Date: 20081010
  Serious: Yes (Death)
  Sender: FDA-Public Use
  Company Number: IN-TYCO HEALTHCARE/MALLINCKRODT-T200800718

PATIENT

DRUGS (1)
  1. OPTIRAY 300 [Suspect]
     Indication: COMPUTERISED TOMOGRAM ABDOMEN
     Dosage: 50 MG, SINGLE
     Route: 042
     Dates: start: 20080417, end: 20080417

REACTIONS (2)
  - CIRCULATORY COLLAPSE [None]
  - DYSPNOEA [None]
